FAERS Safety Report 5522978-5 (Version None)
Quarter: 2007Q4

REPORT INFORMATION
  Report Type: 
  Country: None (occurrence: None)
  Receive Date: 20071121
  Receipt Date: 20071112
  Transmission Date: 20080405
  Serious: Yes (Other)
  Sender: FDA-Public Use
  Company Number: PHRM2007FR02404

PATIENT
  Sex: Male

DRUGS (1)
  1. STERDEX (NVO) [Suspect]
     Indication: CONJUNCTIVITIS
     Dosage: UNK, UNK

REACTIONS (3)
  - CONDITION AGGRAVATED [None]
  - INTENTIONAL DRUG MISUSE [None]
  - KERATITIS HERPETIC [None]
